FAERS Safety Report 15994235 (Version 3)
Quarter: 2019Q2

REPORT INFORMATION
  Report Type: Spontaneous
  Country: BG (occurrence: BG)
  Receive Date: 20190222
  Receipt Date: 20190401
  Transmission Date: 20190711
  Serious: Yes (Death, Hospitalization)
  Sender: FDA-Public Use
  Company Number: BG-ROCHE-2270964

PATIENT
  Age: 50 Year
  Sex: Female
  Weight: 60 kg

DRUGS (1)
  1. XOLAIR [Suspect]
     Active Substance: OMALIZUMAB
     Indication: ASTHMA
     Route: 058

REACTIONS (7)
  - Respiratory failure [Fatal]
  - Toxic epidermal necrolysis [Fatal]
  - Coma [Unknown]
  - Skin exfoliation [Fatal]
  - Asthma [Unknown]
  - Diabetes mellitus [Fatal]
  - Dermatitis exfoliative [Fatal]
